FAERS Safety Report 5134027-1 (Version None)
Quarter: 2006Q4

REPORT INFORMATION
  Report Type: 
  Country: None (occurrence: None)
  Receive Date: 20061018
  Receipt Date: 20061006
  Transmission Date: 20070319
  Serious: Yes (Other)
  Sender: FDA-Public Use
  Company Number: 14890

PATIENT
  Age: 54 Year
  Sex: Female
  Weight: 68.0396 kg

DRUGS (3)
  1. AMIODARONE HCL [Suspect]
     Indication: ATRIAL FIBRILLATION
     Dosage: 600 MG QD
  2. WARFARIN SODIUM [Concomitant]
  3. ZOLPIDEM TARTRATE [Concomitant]

REACTIONS (7)
  - CORNEAL DISORDER [None]
  - DRUG TOXICITY [None]
  - EYE DISORDER [None]
  - PAPILLOEDEMA [None]
  - VISION BLURRED [None]
  - VISUAL FIELD DEFECT [None]
  - VITREOUS FLOATERS [None]
